FAERS Safety Report 7956200-7 (Version None)
Quarter: 2011Q4

REPORT INFORMATION
  Report Type: 
  Country: None (occurrence: None)
  Receive Date: 20111115
  Receipt Date: 20111110
  Transmission Date: 20120403
  Serious: Yes (Hospitalization)
  Sender: FDA-Public Use
  Company Number: 2011029900

PATIENT
  Sex: Female
  Weight: 65.7716 kg

DRUGS (15)
  1. ZEMAIRA [Suspect]
     Indication: CHRONIC OBSTRUCTIVE PULMONARY DISEASE
     Dosage: (60 MG/KG 1X/WEEK, INFUSED AT RATE OF 0.08 ML/KG/MIN (4.7 ML/MIN) INTRAVENOUS  (NOT OTHERWISE SPECIF
     Route: 042
     Dates: start: 20110607
  2. ZEMAIRA [Suspect]
     Indication: ALPHA-1 ANTI-TRYPSIN DEFICIENCY
     Dosage: (60 MG/KG 1X/WEEK, INFUSED AT RATE OF 0.08 ML/KG/MIN (4.7 ML/MIN) INTRAVENOUS  (NOT OTHERWISE SPECIF
     Route: 042
     Dates: start: 20110607
  3. ZEMAIRA [Suspect]
     Dosage: (INTRAVENOUS (NOT OTHERWISE SPECIFIED)
     Route: 042
     Dates: start: 20110524
  4. ZANAFLEX [Concomitant]
  5. MULTIVITAMIN (DAILY MULTIVITAMIN) [Concomitant]
  6. SYMBICORT 80 (BUDESONIDE W/FORMOTEROL FUMARATE) [Concomitant]
  7. ZEMAIRA [Suspect]
     Dosage: (INTRAVENOUS (NOT OTHERWISE SPECIFIED)
     Route: 042
     Dates: start: 20110922
  8. PROVENTIL [Concomitant]
  9. ALLEGRA [Concomitant]
  10. DOXEPIN [Concomitant]
  11. COMBIVENT [Concomitant]
  12. PERCOCET [Concomitant]
  13. VALIUM [Concomitant]
  14. PROZAC [Concomitant]
  15. PRILOSEC [Concomitant]

REACTIONS (15)
  - SPUTUM PURULENT [None]
  - OBSTRUCTIVE AIRWAYS DISORDER [None]
  - OROPHARYNGEAL PAIN [None]
  - CONDITION AGGRAVATED [None]
  - PRURITUS [None]
  - COUGH [None]
  - DEPRESSION [None]
  - CHRONIC SINUSITIS [None]
  - EMPHYSEMA [None]
  - CHRONIC OBSTRUCTIVE PULMONARY DISEASE [None]
  - BRONCHITIS BACTERIAL [None]
  - PNEUMONIA [None]
  - PULMONARY CONGESTION [None]
  - UPPER RESPIRATORY TRACT CONGESTION [None]
  - SLEEP DISORDER [None]
